FAERS Safety Report 8225516-1 (Version None)
Quarter: 2012Q1

REPORT INFORMATION
  Report Type: 
  Country: None (occurrence: None)
  Receive Date: 20120321
  Receipt Date: 20120313
  Transmission Date: 20120608
  Serious: Yes (Hospitalization, Other)
  Sender: FDA-Public Use
  Company Number: CA-JNJFOC-20120307884

PATIENT
  Age: 45 Year
  Sex: Female

DRUGS (3)
  1. OXYCET [Suspect]
     Indication: BACK PAIN
     Dosage: 325 MG/5 MG
     Route: 065
  2. FENTANYL [Suspect]
     Indication: BACK PAIN
     Route: 062
  3. METHYLPREDNISOLONE [Suspect]
     Indication: PRODUCT USED FOR UNKNOWN INDICATION
     Route: 065

REACTIONS (1)
  - ADRENAL INSUFFICIENCY [None]
